FAERS Safety Report 9208154 (Version 1)
Quarter: 2013Q2

REPORT INFORMATION
  Report Type: Spontaneous
  Country: CZ (occurrence: CZ)
  Receive Date: 20130403
  Receipt Date: 20130403
  Transmission Date: 20140414
  Serious: Yes (Hospitalization)
  Sender: FDA-Public Use
  Company Number: PHHY2013CZ031372

PATIENT
  Age: 6 Year
  Sex: Male

DRUGS (3)
  1. OSPEN [Suspect]
     Indication: TONSILLITIS
     Dosage: UNK UKN, UNK
     Route: 048
     Dates: start: 20130314, end: 20130322
  2. OSPEN [Suspect]
     Indication: TONSILLITIS
     Dosage: UNK UKN, UNK
     Route: 048
     Dates: start: 20130314, end: 20130322
  3. IBALGIN [Concomitant]

REACTIONS (4)
  - Hallucination, visual [Recovering/Resolving]
  - Malaise [Recovering/Resolving]
  - Asthenia [Recovering/Resolving]
  - Rash generalised [Recovering/Resolving]
